FAERS Safety Report 7774677-7 (Version None)
Quarter: 2011Q3

REPORT INFORMATION
  Report Type: 
  Country: None (occurrence: None)
  Receive Date: 20110923
  Receipt Date: 20110916
  Transmission Date: 20111222
  Serious: Yes (Hospitalization)
  Sender: FDA-Public Use
  Company Number: JP-ROCHE-803814

PATIENT

DRUGS (3)
  1. AVASTIN [Suspect]
     Indication: LUNG ADENOCARCINOMA
     Route: 041
     Dates: start: 20110906, end: 20110906
  2. CARBOPLATIN [Suspect]
     Indication: LUNG ADENOCARCINOMA
     Route: 041
     Dates: start: 20110906, end: 20110906
  3. ALIMTA [Suspect]
     Indication: LUNG ADENOCARCINOMA
     Route: 041
     Dates: start: 20110906, end: 20110906

REACTIONS (1)
  - CONVULSION [None]
